FAERS Safety Report 17216927 (Version 5)
Quarter: 2025Q3

REPORT INFORMATION
  Report Type: Spontaneous
  Country: EU (occurrence: EU)
  Receive Date: 20191231
  Receipt Date: 20250728
  Transmission Date: 20251020
  Serious: Yes (Hospitalization, Disabling, Other)
  Sender: ABBVIE
  Company Number: None

PATIENT
  Age: 53 Year
  Sex: Female
  Weight: 92 kg

DRUGS (24)
  1. ENANTONE LP [Suspect]
     Active Substance: LEUPROLIDE ACETATE
     Indication: Endometriosis
     Route: 065
     Dates: start: 200311, end: 200401
  2. CHLORMADINONE ACETATE [Suspect]
     Active Substance: CHLORMADINONE ACETATE
     Indication: Endometriosis
     Dosage: 10 MILLIGRAM, QD
     Route: 048
     Dates: start: 20041009, end: 20100330
  3. CHLORMADINONE ACETATE [Suspect]
     Active Substance: CHLORMADINONE ACETATE
     Indication: Endometriosis
     Dosage: 1 DOSAGE FORM, QD
     Route: 048
     Dates: start: 19930127
  4. CHLORMADINONE ACETATE [Suspect]
     Active Substance: CHLORMADINONE ACETATE
     Indication: Endometriosis
     Dosage: 1 DOSAGE FORM, QD
     Route: 048
     Dates: start: 20100331, end: 20150407
  5. CHLORMADINONE ACETATE [Suspect]
     Active Substance: CHLORMADINONE ACETATE
     Indication: Endometriosis
     Dosage: 10 MILLIGRAM, QD
     Route: 065
     Dates: start: 2012, end: 2017
  6. CHLORMADINONE ACETATE [Suspect]
     Active Substance: CHLORMADINONE ACETATE
     Indication: Endometriosis
     Dosage: 1 DOSAGE FORM, QD
     Route: 048
     Dates: start: 20150408, end: 20170912
  7. GONADORELIN [Suspect]
     Active Substance: GONADORELIN
     Indication: Endometriosis
     Route: 048
     Dates: start: 2003, end: 2004
  8. GONADORELIN [Suspect]
     Active Substance: GONADORELIN
     Indication: Endometriosis
     Route: 058
     Dates: start: 2004, end: 2009
  9. CYPROTERONE ACETATE [Suspect]
     Active Substance: CYPROTERONE ACETATE
     Indication: Endometriosis
     Dosage: 25 MILLIGRAM, QD
     Route: 048
  10. CYPROTERONE ACETATE [Suspect]
     Active Substance: CYPROTERONE ACETATE
     Indication: Endometriosis
     Route: 048
     Dates: start: 199711, end: 199805
  11. CYPROTERONE ACETATE [Suspect]
     Active Substance: CYPROTERONE ACETATE
     Indication: Endometriosis
     Dosage: 50 MILLIGRAM, QD
     Route: 048
     Dates: start: 2001, end: 2017
  12. CYPROTERONE ACETATE [Suspect]
     Active Substance: CYPROTERONE ACETATE
     Indication: Endometriosis
     Route: 065
     Dates: start: 1999, end: 2012
  13. CYPROTERONE ACETATE [Suspect]
     Active Substance: CYPROTERONE ACETATE
     Indication: Endometriosis
     Dosage: 1 DOSAGE FORM, QD
     Route: 048
     Dates: start: 20081112, end: 20090401
  14. CYPROTERONE ACETATE [Suspect]
     Active Substance: CYPROTERONE ACETATE
     Indication: Endometriosis
     Dosage: 1000 MILLIGRAM, MONTHLY
     Route: 048
     Dates: start: 199905, end: 20041008
  15. CYPROTERONE ACETATE [Suspect]
     Active Substance: CYPROTERONE ACETATE
     Indication: Endometriosis
     Dosage: 50 MILLIGRAM, QD
     Route: 048
     Dates: start: 20041009, end: 20170912
  16. NOMEGESTROL ACETATE [Suspect]
     Active Substance: NOMEGESTROL ACETATE
     Indication: Polycystic ovarian syndrome
     Dosage: 1 DOSAGE FORM, QD
     Route: 048
     Dates: start: 20081112, end: 20190401
  17. NOMEGESTROL ACETATE [Suspect]
     Active Substance: NOMEGESTROL ACETATE
     Indication: Polycystic ovarian syndrome
     Dosage: 1 DOSAGE FORM, QD
     Route: 048
     Dates: start: 19931201, end: 19940411
  18. NOMEGESTROL ACETATE [Suspect]
     Active Substance: NOMEGESTROL ACETATE
     Indication: Polycystic ovarian syndrome
     Route: 048
     Dates: start: 20010901
  19. NOMEGESTROL ACETATE [Suspect]
     Active Substance: NOMEGESTROL ACETATE
     Indication: Polycystic ovarian syndrome
     Route: 065
     Dates: start: 20020305
  20. NOMEGESTROL ACETATE [Suspect]
     Active Substance: NOMEGESTROL ACETATE
     Indication: Polycystic ovarian syndrome
     Route: 065
     Dates: start: 19950308
  21. NOMEGESTROL ACETATE [Suspect]
     Active Substance: NOMEGESTROL ACETATE
     Indication: Polycystic ovarian syndrome
     Route: 065
     Dates: start: 20200127
  22. NOMEGESTROL ACETATE [Suspect]
     Active Substance: NOMEGESTROL ACETATE
     Indication: Polycystic ovarian syndrome
     Dosage: 1 DOSAGE FORM, QD
     Route: 048
     Dates: start: 20020305
  23. NOMEGESTROL ACETATE [Suspect]
     Active Substance: NOMEGESTROL ACETATE
     Indication: Polycystic ovarian syndrome
     Route: 065
     Dates: start: 20100331, end: 20150407
  24. LEVOTHYROXINE [Concomitant]
     Active Substance: LEVOTHYROXINE
     Indication: Polycystic ovarian syndrome
     Dates: start: 2007

REACTIONS (46)
  - Facial paralysis [Unknown]
  - Meningioma [Recovered/Resolved]
  - Depression [Not Recovered/Not Resolved]
  - Monoplegia [Unknown]
  - Brain neoplasm benign [Not Recovered/Not Resolved]
  - Weight increased [Unknown]
  - Cerebral disorder [Unknown]
  - Musculoskeletal stiffness [Unknown]
  - Headache [Recovering/Resolving]
  - Off label use [Unknown]
  - Musculoskeletal disorder [Unknown]
  - Trismus [Unknown]
  - Sleep apnoea syndrome [Unknown]
  - Obstructive airways disorder [Unknown]
  - Nervous system disorder [Unknown]
  - Memory impairment [Recovered/Resolved]
  - Fatigue [Recovering/Resolving]
  - Epilepsy [Unknown]
  - Dysgraphia [Unknown]
  - Visual impairment [Unknown]
  - Aphasia [Unknown]
  - Product use in unapproved indication [Unknown]
  - Muscular weakness [Unknown]
  - Language disorder [Unknown]
  - Mental fatigue [Unknown]
  - Malaise [Unknown]
  - Pain [Unknown]
  - Paralysis [Unknown]
  - Dyspnoea [Unknown]
  - Irritability [Recovered/Resolved]
  - Speech disorder [Unknown]
  - Gait disturbance [Unknown]
  - Hypoaesthesia oral [Unknown]
  - Anxiety [Unknown]
  - Pituitary tumour [Unknown]
  - Impaired work ability [Unknown]
  - Loss of personal independence in daily activities [Unknown]
  - Frontotemporal dementia [Unknown]
  - Pallor [Recovering/Resolving]
  - Pituitary tumour benign [Unknown]
  - Hemiparesis [Recovering/Resolving]
  - Intracranial pressure increased [Recovering/Resolving]
  - Osteoma [Recovering/Resolving]
  - Seizure [Recovering/Resolving]
  - Dysarthria [Recovering/Resolving]
  - Motor dysfunction [Recovering/Resolving]

NARRATIVE: CASE EVENT DATE: 20050101
